FAERS Safety Report 13601354 (Version 1)
Quarter: 2017Q2

REPORT INFORMATION
  Report Type: Spontaneous
  Country: US (occurrence: US)
  Receive Date: 20170601
  Receipt Date: 20170601
  Transmission Date: 20170830
  Serious: No
  Sender: FDA-Public Use
  Company Number: None

PATIENT
  Age: 42 Year
  Sex: Female
  Weight: 56.25 kg

DRUGS (16)
  1. LORATADINE. [Concomitant]
     Active Substance: LORATADINE
  2. WOMEN^S MULTIVITAMINS [Concomitant]
  3. METHOCARBAMOL. [Concomitant]
     Active Substance: METHOCARBAMOL
  4. LORAZEPAM 1MG MYLAN PHARMACEUTICALS INC. [Suspect]
     Active Substance: LORAZEPAM
     Indication: SLEEP DISORDER
     Dosage: ROUTE - BY MOUTH (SUBLINGUAL)?FREQUENCY - 1 TABLET TWICE PER DAY
     Route: 048
     Dates: start: 20150904, end: 20170325
  5. VANCOMYCIN HYDROCHLORIDE. [Concomitant]
     Active Substance: VANCOMYCIN HYDROCHLORIDE
  6. VITAMIN D [Concomitant]
     Active Substance: CHOLECALCIFEROL
  7. FAMCICLOVIR. [Concomitant]
     Active Substance: FAMCICLOVIR
  8. PROBIOTIC [Concomitant]
     Active Substance: PROBIOTICS NOS
  9. ADDERALL [Concomitant]
     Active Substance: AMPHETAMINE ASPARTATE\AMPHETAMINE SULFATE\DEXTROAMPHETAMINE SACCHARATE\DEXTROAMPHETAMINE SULFATE
  10. FISH OIL [Concomitant]
     Active Substance: FISH OIL
  11. DHEA [Concomitant]
     Active Substance: PRASTERONE
  12. BLACK COHOSH [Concomitant]
     Active Substance: BLACK COHOSH
  13. VITAMIN C [Concomitant]
     Active Substance: ASCORBIC ACID
  14. LORAZEPAM 1MG MYLAN PHARMACEUTICALS INC. [Suspect]
     Active Substance: LORAZEPAM
     Indication: ANXIETY
     Dosage: ROUTE - BY MOUTH (SUBLINGUAL)?FREQUENCY - 1 TABLET TWICE PER DAY
     Route: 048
     Dates: start: 20150904, end: 20170325
  15. LORAZEPAM 1MG MYLAN PHARMACEUTICALS INC. [Suspect]
     Active Substance: LORAZEPAM
     Indication: PANIC ATTACK
     Dosage: ROUTE - BY MOUTH (SUBLINGUAL)?FREQUENCY - 1 TABLET TWICE PER DAY
     Route: 048
     Dates: start: 20150904, end: 20170325
  16. CHASTEBERRY LUTTEX [Concomitant]

REACTIONS (2)
  - Depersonalisation/derealisation disorder [None]
  - Derealisation [None]

NARRATIVE: CASE EVENT DATE: 20150904
